FAERS Safety Report 24428579 (Version 2)
Quarter: 2024Q4

REPORT INFORMATION
  Report Type: Report from Study
  Country: CA (occurrence: CA)
  Receive Date: 20241011
  Receipt Date: 20241122
  Transmission Date: 20250114
  Serious: Yes (Other)
  Sender: CSL BEHRING
  Company Number: CA-BEH-2024169533

PATIENT
  Age: 67 Year
  Sex: Female
  Weight: 70.5 kg

DRUGS (2)
  1. HIZENTRA [Suspect]
     Active Substance: HUMAN IMMUNOGLOBULIN G
     Indication: Secondary immunodeficiency
     Dosage: 8 GRAM, QW
     Route: 065
     Dates: start: 20170102
  2. PLAVIX [Concomitant]
     Active Substance: CLOPIDOGREL BISULFATE
     Dosage: 75 MG
     Dates: start: 20241002

REACTIONS (7)
  - Cerebrovascular accident [Unknown]
  - Transient ischaemic attack [Unknown]
  - Lack of infusion site rotation [Unknown]
  - Malaise [Unknown]
  - Speech disorder [Unknown]
  - Product use complaint [Unknown]
  - Product dose omission in error [Unknown]
